FAERS Safety Report 7415315-2 (Version None)
Quarter: 2011Q2

REPORT INFORMATION
  Report Type: 
  Country: None (occurrence: None)
  Receive Date: 20110414
  Receipt Date: 20101111
  Transmission Date: 20111010
  Serious: No
  Sender: FDA-Public Use
  Company Number: US-MYLANLABS-2010S1021169

PATIENT
  Age: 59 Year
  Sex: Female

DRUGS (2)
  1. VERAPAMIL HCL EXTENDED RELEASE TABLETS, USP [Suspect]
     Indication: BLOOD PRESSURE INCREASED
     Route: 048
     Dates: start: 20100701, end: 20100701
  2. VERAPAMIL HCL EXTENDED RELEASE TABLETS, USP [Suspect]
     Route: 048
     Dates: start: 20100801, end: 20100801

REACTIONS (2)
  - TACHYCARDIA [None]
  - REACTION TO DRUG EXCIPIENTS [None]
